FAERS Safety Report 25713387 (Version 1)
Quarter: 2025Q3

REPORT INFORMATION
  Report Type: Spontaneous
  Country: CN (occurrence: CN)
  Receive Date: 20250822
  Receipt Date: 20250822
  Transmission Date: 20251020
  Serious: Yes (Other)
  Sender: BEIGENE
  Company Number: CN-BEIGENE-BGN-2025-013818

PATIENT
  Age: 74 Year

DRUGS (6)
  1. TISLELIZUMAB [Suspect]
     Active Substance: TISLELIZUMAB
     Indication: Lung carcinoma cell type unspecified recurrent
     Dosage: 200 MILLIGRAM, Q3WK, D1
  2. TISLELIZUMAB [Suspect]
     Active Substance: TISLELIZUMAB
     Dosage: 200 MILLIGRAM, Q3WK, D1
     Route: 041
  3. TISLELIZUMAB [Suspect]
     Active Substance: TISLELIZUMAB
     Dosage: 200 MILLIGRAM, Q3WK, D1
     Route: 041
  4. TISLELIZUMAB [Suspect]
     Active Substance: TISLELIZUMAB
     Dosage: 200 MILLIGRAM, Q3WK, D1
  5. GEMCITABINE HYDROCHLORIDE [Suspect]
     Active Substance: GEMCITABINE HYDROCHLORIDE
     Indication: Lung carcinoma cell type unspecified recurrent
     Dosage: 1.9 GRAM, Q3WK, D1, 8
     Route: 041
  6. GEMCITABINE HYDROCHLORIDE [Suspect]
     Active Substance: GEMCITABINE HYDROCHLORIDE
     Dosage: 1.9 GRAM, Q3WK, D1, 8

REACTIONS (3)
  - Xerophthalmia [Recovering/Resolving]
  - Cataract [Recovering/Resolving]
  - Ulcerative keratitis [Recovering/Resolving]
